FAERS Safety Report 6728245-6 (Version None)
Quarter: 2010Q2

REPORT INFORMATION
  Report Type: 
  Country: None (occurrence: None)
  Receive Date: 20100517
  Receipt Date: 20100506
  Transmission Date: 20101027
  Serious: Yes (Hospitalization)
  Sender: FDA-Public Use
  Company Number: US-BRISTOL-MYERS SQUIBB COMPANY-15107022

PATIENT
  Age: 67 Year
  Sex: Male

DRUGS (5)
  1. CISPLATIN [Suspect]
     Dosage: 4TH COURSE
     Route: 042
     Dates: start: 19800901
  2. CYCLOPHOSPHAMIDE [Suspect]
     Dosage: 4TH COURSE
     Route: 042
     Dates: start: 19800901
  3. MANNITOL [Suspect]
     Dosage: IN ONE HALF NORMAL SALINE
     Dates: start: 19800101
  4. FUROSEMIDE [Suspect]
     Indication: POLYURIA
     Route: 048
     Dates: start: 19800101
  5. PREDNISONE [Concomitant]

REACTIONS (1)
  - RENAL SALT-WASTING SYNDROME [None]
